FAERS Safety Report 9007522 (Version 1)
Quarter: 2013Q1

REPORT INFORMATION
  Report Type: Spontaneous
  Country: BR (occurrence: BR)
  Receive Date: 20130111
  Receipt Date: 20130111
  Transmission Date: 20140127
  Serious: Yes (Disabling, Other)
  Sender: FDA-Public Use
  Company Number: BR-BRISTOL-MYERS SQUIBB COMPANY-17268392

PATIENT
  Age: 83 Year
  Sex: Female
  Weight: 70 kg

DRUGS (4)
  1. APROZIDE [Suspect]
     Indication: HYPERTENSION
     Dosage: 300/12.5MG TABS?RED TO HALF TAB DAILY
     Route: 048
     Dates: start: 2003
  2. SERTRALINE [Concomitant]
     Indication: ANXIETY
     Dosage: TABS
     Route: 048
  3. LORAX [Concomitant]
     Dosage: TABS
     Route: 048
  4. AMITRIPTYLINE [Concomitant]
     Indication: DEPRESSION
     Dosage: TABS
     Route: 048

REACTIONS (5)
  - Eye haemorrhage [Unknown]
  - Blindness unilateral [Unknown]
  - Glaucoma [Unknown]
  - Depression [Unknown]
  - Medication error [Unknown]
